FAERS Safety Report 8002791-X (Version None)
Quarter: 2011Q4

REPORT INFORMATION
  Report Type: 
  Country: None (occurrence: None)
  Receive Date: 20111219
  Receipt Date: 20111213
  Transmission Date: 20120403
  Serious: Yes (Other)
  Sender: FDA-Public Use
  Company Number: AUR-APL-2011-06130

PATIENT
  Age: 67 Year
  Sex: Female
  Weight: 61.5 kg

DRUGS (4)
  1. INFLUENZA VIRUS (INFLUENZA VACCINE) [Concomitant]
  2. ZOPICLONE (ZOPICLONE) [Concomitant]
  3. BENDROFLUMETHIAZIDE (BENDROFLUMETHIAZIDE) [Concomitant]
  4. SIMVASTATIN [Suspect]
     Indication: PRODUCT USED FOR UNKNOWN INDICATION
     Dosage: UNKNOWN
     Dates: start: 20110712

REACTIONS (2)
  - SLEEP DISORDER [None]
  - NIGHTMARE [None]
